FAERS Safety Report 8845387 (Version 1)
Quarter: 2012Q4

REPORT INFORMATION
  Report Type: Spontaneous
  Country: US (occurrence: None)
  Receive Date: 20121015
  Receipt Date: 20121015
  Transmission Date: 20130627
  Serious: Yes (Hospitalization)
  Sender: FDA-Public Use
  Company Number: 2009001507

PATIENT
  Age: 79 Year
  Sex: Female

DRUGS (9)
  1. TARCEVA [Suspect]
     Indication: NON-SMALL CELL LUNG CANCER
     Route: 048
     Dates: start: 20070509
  2. TARCEVA [Suspect]
     Indication: NON-SMALL CELL LUNG CANCER
     Route: 048
     Dates: start: 20070509
  3. TARCEVA [Suspect]
     Indication: NON-SMALL CELL LUNG CANCER
     Route: 048
     Dates: start: 20070509
  4. DILANTIN (PHENYTOIN SODIUM) [Concomitant]
  5. IPRATROPIUM/ALBUTEROL (IPRATROPIUM BROMIDE, SALBUTAMOL SULFATE) [Concomitant]
  6. ADVAIR DISKUS (SERETIDE MITE) [Concomitant]
  7. SPIRIVA HANDIHALER (TIOTROPIUM BROMIDE) [Concomitant]
  8. AMBIEN (ZOLPIDEM TARTRATE) [Concomitant]
  9. OXYCODONE [Concomitant]

REACTIONS (6)
  - Incorrect dose administered [None]
  - Hip fracture [None]
  - Toxicity to various agents [None]
  - Decubitus ulcer [None]
  - Dyspnoea [None]
  - Dermatitis acneiform [None]
